FAERS Safety Report 21403666 (Version 1)
Quarter: 2022Q4

REPORT INFORMATION
  Report Type: Spontaneous
  Country: DE (occurrence: DE)
  Receive Date: 20221003
  Receipt Date: 20221003
  Transmission Date: 20230113
  Serious: Yes (Other)
  Sender: FDA-Public Use
  Company Number: None

PATIENT
  Age: 81 Year
  Sex: Male

DRUGS (11)
  1. CYTARABINE [Suspect]
     Active Substance: CYTARABINE
     Indication: Plasma cell myeloma
     Dosage: UNK (TRIPLE THERAPY AND AS AGE-ADJUSTED SYSTEMIC CHEMOTHERAPY)
     Route: 037
  2. PREDNISONE [Suspect]
     Active Substance: PREDNISONE
     Indication: Plasma cell myeloma
     Dosage: UNK, CYCLIC (NINE CYCLES OF VMP CHEMOTHERAPY)
     Route: 065
  3. TRAMETINIB [Suspect]
     Active Substance: TRAMETINIB
     Indication: Plasma cell myeloma
     Dosage: 2 MG, QD (COMBINATIONAL TARGETED THERAPY)
     Route: 065
  4. TRAMETINIB [Suspect]
     Active Substance: TRAMETINIB
     Indication: Targeted cancer therapy
  5. DABRAFENIB [Suspect]
     Active Substance: DABRAFENIB
     Indication: Plasma cell myeloma
     Dosage: 150 MG, UNKNOWN (COMBINATIONAL TARGETED THERAPY)
     Route: 065
  6. DABRAFENIB [Suspect]
     Active Substance: DABRAFENIB
     Indication: Targeted cancer therapy
  7. BORTEZOMIB [Suspect]
     Active Substance: BORTEZOMIB
     Indication: Plasma cell myeloma
     Dosage: UNK, CYCLIC (NINE CYCLES OF VMP CHEMOTHERAPY)
     Route: 065
  8. DEXAMETHASONE [Suspect]
     Active Substance: DEXAMETHASONE
     Indication: Plasma cell myeloma
     Dosage: UNK (TRIPLE THERAPY)
     Route: 037
  9. METHOTREXATE [Suspect]
     Active Substance: METHOTREXATE
     Indication: Plasma cell myeloma
     Dosage: UNK (TRIPLE THERAPY)
     Route: 037
  10. THIOTEPA [Suspect]
     Active Substance: THIOTEPA
     Indication: Plasma cell myeloma
     Dosage: UNK (TRIPLE THERAPY AND AGE-ADJUSTED SYSTEMIC CHEMOTHERAPY)
     Route: 037
  11. MELPHALAN [Suspect]
     Active Substance: MELPHALAN
     Indication: Plasma cell myeloma
     Dosage: UNK (NINE CYCLES OF VMP CHEMOTHERAPY)
     Route: 065

REACTIONS (5)
  - Bacterial sepsis [Unknown]
  - Neutropenia [Unknown]
  - Drug ineffective [Unknown]
  - Multiple-drug resistance [Unknown]
  - Product use in unapproved indication [Unknown]
